FAERS Safety Report 5293181-1 (Version None)
Quarter: 2007Q2

REPORT INFORMATION
  Report Type: 
  Country: None (occurrence: None)
  Receive Date: 20070411
  Receipt Date: 20070406
  Transmission Date: 20071010
  Serious: Yes (Other)
  Sender: FDA-Public Use
  Company Number: HQWYE336101MAR07

PATIENT
  Age: 68 Year

DRUGS (10)
  1. AMIODARONE HCL [Suspect]
     Route: 065
  2. LANSOPRAZOLE [Suspect]
     Route: 065
  3. ACIPIMOX [Suspect]
     Route: 065
  4. PERINDOPRIL ERBUMINE [Suspect]
     Route: 065
  5. DIGOXIN [Suspect]
     Route: 065
  6. EZETIMIBE [Suspect]
     Route: 065
  7. FUROSEMIDE [Suspect]
     Route: 065
  8. FUROSEMIDE [Suspect]
     Route: 065
  9. BISOPROLOL [Suspect]
     Route: 065
  10. ACETYLSALICYLIC ACID SRT [Suspect]
     Route: 065

REACTIONS (5)
  - ATRIAL FIBRILLATION [None]
  - DIZZINESS [None]
  - FATIGUE [None]
  - LEFT VENTRICULAR FAILURE [None]
  - PARAESTHESIA [None]
